FAERS Safety Report 5651067-4 (Version None)
Quarter: 2008Q1

REPORT INFORMATION
  Report Type: 
  Country: None (occurrence: None)
  Receive Date: 20080305
  Receipt Date: 20080304
  Transmission Date: 20080703
  Serious: Yes (Other)
  Sender: FDA-Public Use
  Company Number: B0508219A

PATIENT
  Age: 8 Year
  Sex: Male
  Weight: 30 kg

DRUGS (5)
  1. RELENZA [Suspect]
     Indication: INFLUENZA
     Dosage: 10MG TWICE PER DAY
     Route: 055
     Dates: start: 20080202, end: 20080206
  2. ASVERIN [Concomitant]
     Indication: INFLUENZA
     Dosage: .6G PER DAY
     Route: 048
     Dates: start: 20080202
  3. MUCODYNE [Concomitant]
     Indication: INFLUENZA
     Dosage: .99G PER DAY
     Route: 048
     Dates: start: 20080202
  4. TAVEGYL [Concomitant]
     Indication: INFLUENZA
     Dosage: .39G PER DAY
     Route: 048
     Dates: start: 20080202
  5. CALONAL [Concomitant]
     Indication: DRUG USE FOR UNKNOWN INDICATION
     Route: 065

REACTIONS (2)
  - ABNORMAL BEHAVIOUR [None]
  - DEPRESSED LEVEL OF CONSCIOUSNESS [None]
